FAERS Safety Report 23147438 (Version 1)
Quarter: 2023Q4

REPORT INFORMATION
  Report Type: Spontaneous
  Country: UZ (occurrence: UZ)
  Receive Date: 20231106
  Receipt Date: 20231106
  Transmission Date: 20240110
  Serious: Yes (Death, Hospitalization, Other)
  Sender: FDA-Public Use
  Company Number: UZ-JNJFOC-20231075270

PATIENT
  Age: 67 Year
  Sex: Female

DRUGS (29)
  1. SIRTURO [Suspect]
     Active Substance: BEDAQUILINE FUMARATE
     Indication: Tuberculosis
     Route: 048
     Dates: start: 20230107, end: 20230120
  2. SIRTURO [Suspect]
     Active Substance: BEDAQUILINE FUMARATE
     Dosage: 3/7
     Route: 048
     Dates: start: 20230123, end: 20230411
  3. SIRTURO [Suspect]
     Active Substance: BEDAQUILINE FUMARATE
     Dosage: 3/7
     Route: 048
     Dates: start: 20230602, end: 20230606
  4. SIRTURO [Suspect]
     Active Substance: BEDAQUILINE FUMARATE
     Dosage: 3/7
     Route: 048
     Dates: start: 20230614, end: 20231023
  5. LINEZOLID [Suspect]
     Active Substance: LINEZOLID
     Indication: Tuberculosis
     Route: 048
     Dates: start: 20230107, end: 20230411
  6. LINEZOLID [Suspect]
     Active Substance: LINEZOLID
     Indication: Type 2 diabetes mellitus
     Route: 048
     Dates: start: 20230601, end: 20230606
  7. LINEZOLID [Suspect]
     Active Substance: LINEZOLID
     Indication: Hepatitis C
     Route: 048
     Dates: start: 20230710, end: 20230724
  8. LEVOFLOXACIN [Suspect]
     Active Substance: LEVOFLOXACIN
     Indication: Tuberculosis
     Route: 048
     Dates: start: 20230107, end: 20230411
  9. LEVOFLOXACIN [Suspect]
     Active Substance: LEVOFLOXACIN
     Indication: Type 2 diabetes mellitus
  10. LEVOFLOXACIN [Suspect]
     Active Substance: LEVOFLOXACIN
     Indication: Hepatitis C
  11. CLOFAZIMINE [Suspect]
     Active Substance: CLOFAZIMINE
     Indication: Tuberculosis
     Route: 048
     Dates: start: 20230107, end: 20230411
  12. CLOFAZIMINE [Suspect]
     Active Substance: CLOFAZIMINE
     Indication: Type 2 diabetes mellitus
     Route: 048
     Dates: start: 20230529, end: 20230606
  13. CLOFAZIMINE [Suspect]
     Active Substance: CLOFAZIMINE
     Indication: Hepatitis C
     Route: 048
     Dates: start: 20230613, end: 20231023
  14. CYCLOSERINE [Suspect]
     Active Substance: CYCLOSERINE
     Indication: Tuberculosis
     Route: 048
     Dates: start: 20230107, end: 20230411
  15. CYCLOSERINE [Suspect]
     Active Substance: CYCLOSERINE
     Indication: Type 2 diabetes mellitus
     Route: 048
     Dates: start: 20230927, end: 20230929
  16. CYCLOSERINE [Suspect]
     Active Substance: CYCLOSERINE
     Indication: Hepatitis C
     Route: 048
     Dates: start: 20230930, end: 20231023
  17. MOXIFLOXACIN [Suspect]
     Active Substance: MOXIFLOXACIN
     Indication: Tuberculosis
     Route: 048
     Dates: start: 20230526, end: 20230606
  18. MOXIFLOXACIN [Suspect]
     Active Substance: MOXIFLOXACIN
     Indication: Type 2 diabetes mellitus
     Route: 048
     Dates: start: 20230613, end: 20231023
  19. MOXIFLOXACIN [Suspect]
     Active Substance: MOXIFLOXACIN
     Indication: Hepatitis C
  20. HEPARIN [Concomitant]
     Active Substance: HEPARIN SODIUM
     Indication: Product used for unknown indication
     Dosage: 5000 UNITS
     Route: 058
  21. CALCIUM GLUCONATE [Concomitant]
     Active Substance: CALCIUM GLUCONATE
     Indication: Product used for unknown indication
     Dosage: 10%- 5ML
     Route: 042
  22. PREDNISOLONE [Concomitant]
     Active Substance: PREDNISOLONE
     Indication: Product used for unknown indication
     Route: 042
  23. FUROSEMIDE [Concomitant]
     Active Substance: FUROSEMIDE
     Indication: Product used for unknown indication
     Dosage: 1%-4ML
     Route: 042
  24. ENALAPRIL [Concomitant]
     Active Substance: ENALAPRIL
     Indication: Product used for unknown indication
     Route: 048
  25. ACTIVATED CARBON WITH PECTIN [Concomitant]
     Indication: Product used for unknown indication
     Route: 048
  26. EPINEPHRINE [Concomitant]
     Active Substance: EPINEPHRINE
     Indication: Product used for unknown indication
     Dosage: 0.1%-1.OML
     Route: 042
  27. ATROPINE [Concomitant]
     Active Substance: ATROPINE
     Indication: Product used for unknown indication
     Dosage: 0.1%- 1.0ML
     Route: 042
  28. INSULIN NOS [Concomitant]
     Active Substance: INSULIN NOS
     Indication: Type 2 diabetes mellitus
     Dosage: 16 UNITS
     Route: 065
  29. METFORMIN HYDROCHLORIDE\VILDAGLIPTIN [Concomitant]
     Active Substance: METFORMIN HYDROCHLORIDE\VILDAGLIPTIN
     Indication: Product used for unknown indication
     Route: 065

REACTIONS (6)
  - Multiple organ dysfunction syndrome [Fatal]
  - Chronic kidney disease [Unknown]
  - Diabetic metabolic decompensation [Unknown]
  - Hypertension [Unknown]
  - Hydronephrosis [Unknown]
  - Hydrothorax [Unknown]

NARRATIVE: CASE EVENT DATE: 20231024
